FAERS Safety Report 16973506 (Version 2)
Quarter: 2020Q1

REPORT INFORMATION
  Report Type: Spontaneous
  Country: FR (occurrence: FR)
  Receive Date: 20191030
  Receipt Date: 20200110
  Transmission Date: 20200409
  Serious: Yes (Hospitalization)
  Sender: FDA-Public Use
  Company Number: FR-TEVA-2019-FR-1129229

PATIENT
  Age: 0 Day
  Sex: Male
  Weight: 2.73 kg

DRUGS (2)
  1. VENLAFAXINE [Suspect]
     Active Substance: VENLAFAXINE HYDROCHLORIDE
     Indication: PRODUCT USED FOR UNKNOWN INDICATION
     Dosage: 1 DOSAGE FORMS
     Route: 064
     Dates: start: 201901, end: 20190328
  2. MODIODAL [Suspect]
     Active Substance: MODAFINIL
     Indication: NARCOLEPSY
     Dosage: 4 DOSAGE FORMS
     Route: 064
     Dates: start: 201901, end: 20190328

REACTIONS (4)
  - Hypotonia [Not Recovered/Not Resolved]
  - Foetal hypokinesia [Recovered/Resolved with Sequelae]
  - Foetal malnutrition [Not Recovered/Not Resolved]
  - Cryptorchism [Not Recovered/Not Resolved]

NARRATIVE: CASE EVENT DATE: 201908
